FAERS Safety Report 11204968 (Version 2)
Quarter: 2016Q1

REPORT INFORMATION
  Report Type: Spontaneous
  Country: FR (occurrence: FR)
  Receive Date: 20150622
  Receipt Date: 20160215
  Transmission Date: 20160525
  Serious: Yes (Hospitalization)
  Sender: FDA-Public Use
  Company Number: FR-ROCHE-1597286

PATIENT
  Age: 70 Year
  Sex: Male

DRUGS (11)
  1. HYPERIUM [Concomitant]
     Active Substance: RILMENIDINE PHOSPHATE
  2. TENORMIN [Concomitant]
     Active Substance: ATENOLOL
  3. APROVEL [Concomitant]
     Active Substance: IRBESARTAN
  4. PERMIXON [Concomitant]
     Active Substance: SAW PALMETTO
  5. LUCENTIS [Suspect]
     Active Substance: RANIBIZUMAB
     Route: 050
     Dates: start: 20160125
  6. ZOCOR [Concomitant]
     Active Substance: SIMVASTATIN
  7. LUCENTIS [Suspect]
     Active Substance: RANIBIZUMAB
     Indication: AGE-RELATED MACULAR DEGENERATION
     Dosage: DOSE REPORTED AS 10 MG/ML
     Route: 050
     Dates: start: 20111107
  8. INSULIN [Concomitant]
     Active Substance: INSULIN NOS
  9. GLUCOPHAGE [Concomitant]
     Active Substance: METFORMIN HYDROCHLORIDE
  10. KEPPRA [Concomitant]
     Active Substance: LEVETIRACETAM
  11. PLAVIX [Concomitant]
     Active Substance: CLOPIDOGREL BISULFATE

REACTIONS (2)
  - Nervous system disorder [Recovered/Resolved]
  - Language disorder [Recovered/Resolved]

NARRATIVE: CASE EVENT DATE: 20141227
